FAERS Safety Report 6120940-5 (Version None)
Quarter: 2009Q1

REPORT INFORMATION
  Report Type: 
  Country: None (occurrence: None)
  Receive Date: 20090312
  Receipt Date: 20090226
  Transmission Date: 20090719
  Serious: No
  Sender: FDA-Public Use
  Company Number: LITAE022609002

PATIENT
  Sex: Female

DRUGS (3)
  1. TRIMETHOPRIM [Suspect]
     Indication: DISEASE RECURRENCE
     Dosage: 100 MG QD ORALLY
     Route: 048
  2. TRIMETHOPRIM [Suspect]
     Indication: PROPHYLAXIS
     Dosage: 100 MG QD ORALLY
     Route: 048
  3. TRIMETHOPRIM [Suspect]
     Indication: URINARY TRACT INFECTION
     Dosage: 100 MG QD ORALLY
     Route: 048

REACTIONS (1)
  - LETHARGY [None]
